FAERS Safety Report 9494645 (Version 1)
Quarter: 2013Q3

REPORT INFORMATION
  Report Type: Spontaneous
  Country: DE (occurrence: DE)
  Receive Date: 20130903
  Receipt Date: 20130903
  Transmission Date: 20140515
  Serious: Yes (Death, Life-Threatening)
  Sender: FDA-Public Use
  Company Number: DE-ELI_LILLY_AND_COMPANY-DE201308006855

PATIENT
  Age: 74 Year
  Sex: Male

DRUGS (14)
  1. ZYPREXA [Suspect]
     Dosage: 2.5 MG, QD
     Route: 048
     Dates: start: 20011106
  2. TOREM                              /01036501/ [Concomitant]
     Dosage: 5 MG, QD
     Route: 048
  3. DYNACIL                            /00915302/ [Concomitant]
     Dosage: 20 MG, QD
     Route: 048
  4. NORVASC [Concomitant]
     Dosage: 5 MG, QD
     Route: 048
  5. DIGITOXIN [Concomitant]
     Dosage: 0.07 MG, QD
     Route: 048
  6. CABASERIL [Concomitant]
     Dosage: 2 MG, QD
     Route: 048
  7. VITAMIN B6 [Concomitant]
     Dosage: 1 DF, QD
  8. CYNT                               /00985301/ [Concomitant]
     Dosage: 0.3 MG, QD
     Route: 048
  9. BROMHEXIN [Concomitant]
     Dosage: 60 GTT, QD
  10. ACC                                /00082801/ [Concomitant]
     Dosage: 600 MG, QD
     Route: 048
  11. FERRO SANOL DUODENAL [Concomitant]
     Dosage: 1 DF, QD
  12. PK MERZ [Concomitant]
     Dosage: 2 DF, QD
  13. TAVOR                              /00273201/ [Concomitant]
     Dosage: 1 MG, QD
     Route: 048
  14. ROCEPHIN [Concomitant]
     Dosage: 2000 MG, UNKNOWN
     Route: 042

REACTIONS (2)
  - Multi-organ failure [Fatal]
  - Multimorbidity [Fatal]
